FAERS Safety Report 11685928 (Version 3)
Quarter: 2016Q1

REPORT INFORMATION
  Report Type: Spontaneous
  Country: US (occurrence: US)
  Receive Date: 20151030
  Receipt Date: 20160216
  Transmission Date: 20160525
  Serious: Yes (Life-Threatening, Hospitalization, Disabling)
  Sender: FDA-Public Use
  Company Number: US-BAYER-2015-451202

PATIENT
  Age: 28 Year
  Sex: Female
  Weight: 93.88 kg

DRUGS (5)
  1. ALBUTEROL INHALER [Concomitant]
     Active Substance: ALBUTEROL
     Dosage: UNK
     Dates: start: 2009
  2. CELEXA [Concomitant]
     Active Substance: CITALOPRAM HYDROBROMIDE
     Dosage: UNK
     Dates: start: 2013
  3. MIRENA [Suspect]
     Active Substance: LEVONORGESTREL
     Indication: CONTRACEPTION
     Dosage: 20 MCG/24HR, CONT
     Route: 015
     Dates: start: 20100326, end: 20131015
  4. ZOLOFT [Concomitant]
     Active Substance: SERTRALINE HYDROCHLORIDE
     Dosage: UNK
     Dates: start: 2011, end: 2012
  5. IMITREX [Concomitant]
     Active Substance: SUMATRIPTAN SUCCINATE
     Dosage: UNK
     Dates: start: 2009

REACTIONS (8)
  - Device issue [None]
  - Balance disorder [None]
  - Pelvic pain [None]
  - Pregnancy with contraceptive device [None]
  - Device issue [None]
  - General physical health deterioration [None]
  - Uterine perforation [None]
  - Drug ineffective [None]

NARRATIVE: CASE EVENT DATE: 201004
